FAERS Safety Report 23265494 (Version 1)
Quarter: 2023Q4

REPORT INFORMATION
  Report Type: Spontaneous
  Country: US (occurrence: US)
  Receive Date: 20231206
  Receipt Date: 20231206
  Transmission Date: 20240110
  Serious: Yes (Hospitalization, Other)
  Sender: FDA-Public Use
  Company Number: US-AZURITY PHARMACEUTICALS, INC.-US-2023ARB004973

PATIENT
  Age: 43 Year
  Sex: Female

DRUGS (1)
  1. TOPIRAMATE [Suspect]
     Active Substance: TOPIRAMATE
     Indication: Migraine prophylaxis
     Dosage: 100 MG, QD

REACTIONS (5)
  - Renal tubular acidosis [Unknown]
  - Hypernatraemia [Recovered/Resolved]
  - Aphasia [Unknown]
  - Respiratory acidosis [Unknown]
  - Acidosis hyperchloraemic [Unknown]
